FAERS Safety Report 14457086 (Version 1)
Quarter: 2018Q1

REPORT INFORMATION
  Report Type: Spontaneous
  Country: US (occurrence: US)
  Receive Date: 20180130
  Receipt Date: 20180130
  Transmission Date: 20180509
  Serious: Yes (Hospitalization)
  Sender: FDA-Public Use
  Company Number: US-BAYER-2018-015483

PATIENT
  Age: 21 Year

DRUGS (3)
  1. CIPRO [Suspect]
     Active Substance: CIPROFLOXACIN HYDROCHLORIDE
     Indication: MENINGITIS BACTERIAL
     Dosage: 500 MG, BID
     Route: 048
  2. VANCOMYCIN [Suspect]
     Active Substance: VANCOMYCIN
     Route: 042
  3. ROCEFIN [Suspect]
     Active Substance: CEFTRIAXONE SODIUM
     Route: 042

REACTIONS (7)
  - Pain [None]
  - Chills [None]
  - Neck pain [None]
  - Musculoskeletal stiffness [None]
  - Headache [None]
  - Fatigue [None]
  - Photophobia [None]
